FAERS Safety Report 9286395 (Version 1)
Quarter: 2013Q2

REPORT INFORMATION
  Report Type: Spontaneous
  Country: US (occurrence: US)
  Receive Date: 20130513
  Receipt Date: 20130513
  Transmission Date: 20140414
  Serious: No
  Sender: FDA-Public Use
  Company Number: US-BAYER-2013-059339

PATIENT
  Age: 69 Year
  Sex: Female
  Weight: 62.59 kg

DRUGS (4)
  1. ALEVE TABLET [Suspect]
     Dosage: 2 DF, BID
     Route: 048
     Dates: start: 2010, end: 20130506
  2. METFORMIN [Concomitant]
  3. LISINOPRIL HCT [Concomitant]
  4. SIMVASTATIN [Concomitant]

REACTIONS (2)
  - Incorrect drug administration duration [None]
  - Incorrect dose administered [None]
